FAERS Safety Report 5310950-X (Version None)
Quarter: 2007Q2

REPORT INFORMATION
  Report Type: 
  Country: None (occurrence: None)
  Receive Date: 20070426
  Receipt Date: 20070426
  Transmission Date: 20071010
  Serious: Yes (Hospitalization)
  Sender: FDA-Public Use
  Company Number: None

PATIENT
  Sex: Female
  Weight: 116 kg

DRUGS (3)
  1. VITA-MIN TM PURITAN PRIDE [Suspect]
     Indication: NEUROPATHY
     Dosage: 1 TAB QD PO
     Route: 048
     Dates: start: 20070308, end: 20070319
  2. VITA-MIN TM PURITAN PRIDE [Suspect]
     Indication: PROPHYLAXIS
     Dosage: 1 TAB QD PO
     Route: 048
     Dates: start: 20070308, end: 20070319
  3. VITAMIN B-6 50MG PURITAN PRIDE [Suspect]
     Dosage: 1 TAB Q8 PO
     Route: 048

REACTIONS (4)
  - DISEASE PROGRESSION [None]
  - INTESTINAL OBSTRUCTION [None]
  - NAUSEA [None]
  - VOMITING [None]
